FAERS Safety Report 9147834 (Version 2)
Quarter: 2013Q1

REPORT INFORMATION
  Report Type: Report from Study
  Country: US (occurrence: US)
  Receive Date: 20130307
  Receipt Date: 20130318
  Transmission Date: 20140127
  Serious: Yes (Hospitalization, Disabling)
  Sender: FDA-Public Use
  Company Number: US-US-EMD SERONO, INC.-7197081

PATIENT
  Sex: Female

DRUGS (1)
  1. REBIF [Suspect]
     Indication: MULTIPLE SCLEROSIS
     Route: 058
     Dates: start: 20050303, end: 201302

REACTIONS (3)
  - Blindness unilateral [Not Recovered/Not Resolved]
  - Eyeball rupture [Not Recovered/Not Resolved]
  - Eye injury [Not Recovered/Not Resolved]
